FAERS Safety Report 8423467 (Version 2)
Quarter: 2013Q3

REPORT INFORMATION
  Report Type: Report from Study
  Country: MX (occurrence: MX)
  Receive Date: 20120223
  Receipt Date: 20130717
  Transmission Date: 20140515
  Serious: Yes (Other)
  Sender: FDA-Public Use
  Company Number: PHHY2012MX015032

PATIENT
  Age: 71 Year
  Sex: Female

DRUGS (3)
  1. CO-DIOVAN [Suspect]
     Indication: HYPERTENSION
     Dosage: 1.25 DF (160/12.5 MG), DAILY
     Dates: start: 201201
  2. MONTELUKAST [Concomitant]
     Dosage: 1 DF (UNK), DAILY
  3. RIVOTRIL [Concomitant]
     Dosage: 1 DF (1 SPOONFUL), TID (EVERY 8 HOURS)
     Dates: start: 201111

REACTIONS (3)
  - Effusion [Not Recovered/Not Resolved]
  - Intraocular pressure increased [Not Recovered/Not Resolved]
  - Blood pressure fluctuation [Not Recovered/Not Resolved]
